FAERS Safety Report 5453715-0 (Version None)
Quarter: 2007Q3

REPORT INFORMATION
  Report Type: 
  Country: None (occurrence: None)
  Receive Date: 20070917
  Receipt Date: 20070907
  Transmission Date: 20080115
  Serious: Yes (Other)
  Sender: FDA-Public Use
  Company Number: GB-BRISTOL-MYERS SQUIBB COMPANY-13906714

PATIENT
  Age: 62 Year
  Sex: Male

DRUGS (6)
  1. METFORMIN HCL [Suspect]
     Indication: TYPE 2 DIABETES MELLITUS
  2. ORLISTAT [Suspect]
     Indication: OBESITY
     Dates: start: 20070824
  3. ASPIRIN [Concomitant]
  4. CO-PROXAMOL [Concomitant]
  5. SILDENAFIL CITRATE [Concomitant]
  6. SIMVASTATIN [Concomitant]

REACTIONS (2)
  - DRUG INTERACTION [None]
  - GLYCOSURIA [None]
